FAERS Safety Report 5859115-3 (Version None)
Quarter: 2008Q3

REPORT INFORMATION
  Report Type: 
  Country: None (occurrence: None)
  Receive Date: 20080827
  Receipt Date: 20080814
  Transmission Date: 20090109
  Serious: Yes (Hospitalization)
  Sender: FDA-Public Use
  Company Number: PHHY2008GB16866

PATIENT
  Sex: Male

DRUGS (4)
  1. EXELON [Suspect]
     Indication: DEMENTIA ALZHEIMER'S TYPE
     Dosage: 9.5 MG, UNK
     Route: 062
     Dates: start: 20080727
  2. MADOPAR [Concomitant]
     Route: 048
  3. MIRTAZAPINE [Concomitant]
     Route: 048
  4. STALEVO 100 [Concomitant]
     Route: 048

REACTIONS (5)
  - BALANCE DISORDER [None]
  - DYSSTASIA [None]
  - MALAISE [None]
  - MOBILITY DECREASED [None]
  - PARKINSON'S DISEASE [None]
